FAERS Safety Report 24994406 (Version 2)
Quarter: 2025Q1

REPORT INFORMATION
  Report Type: Spontaneous
  Country: GB (occurrence: GB)
  Receive Date: 20250221
  Receipt Date: 20250310
  Transmission Date: 20250409
  Serious: Yes (Hospitalization, Other)
  Sender: MYLAN
  Company Number: GB-MYLANLABS-2025M1014038

PATIENT
  Sex: Male

DRUGS (8)
  1. CLOZARIL [Suspect]
     Active Substance: CLOZAPINE
     Indication: Schizophrenia
     Route: 048
  2. CLOZARIL [Suspect]
     Active Substance: CLOZAPINE
  3. CLOZARIL [Suspect]
     Active Substance: CLOZAPINE
  4. CLOZARIL [Suspect]
     Active Substance: CLOZAPINE
     Route: 048
  5. CLOZARIL [Suspect]
     Active Substance: CLOZAPINE
     Route: 048
  6. CLOZARIL [Suspect]
     Active Substance: CLOZAPINE
  7. CLOZARIL [Suspect]
     Active Substance: CLOZAPINE
  8. CLOZARIL [Suspect]
     Active Substance: CLOZAPINE
     Route: 048

REACTIONS (10)
  - Hospitalisation [Unknown]
  - Leukocytosis [Not Recovered/Not Resolved]
  - Neutrophilia [Not Recovered/Not Resolved]
  - Thrombocytopenia [Recovering/Resolving]
  - Anaemia [Recovering/Resolving]
  - Thrombocytosis [Unknown]
  - Illness [Unknown]
  - White blood cell count decreased [Recovered/Resolved]
  - Eosinophil count decreased [Recovered/Resolved]
  - Therapy interrupted [Unknown]

NARRATIVE: CASE EVENT DATE: 20250212
